FAERS Safety Report 5280415-2 (Version None)
Quarter: 2007Q1

REPORT INFORMATION
  Report Type: 
  Country: None (occurrence: None)
  Receive Date: 20061229
  Receipt Date: 20060811
  Transmission Date: 20070707
  Serious: Yes (Other)
  Sender: FDA-Public Use
  Company Number: 2006UW15445

PATIENT
  Age: 44 Year
  Sex: Female
  Weight: 100.6985 kg

DRUGS (11)
  1. CRESTOR [Suspect]
     Indication: BLOOD CHOLESTEROL INCREASED
     Dosage: 10 MG PO
     Route: 048
     Dates: start: 20060728
  2. VITAMIN B-12 [Concomitant]
  3. ZONEGRAN [Concomitant]
  4. TEGRETOL [Concomitant]
  5. MAGNESIUM OXIDE [Concomitant]
  6. ESGIC [Concomitant]
  7. DICLOFENAC SODIUM [Concomitant]
  8. BACLOFEN [Concomitant]
  9. CYMBALTA [Concomitant]
  10. XANAX [Concomitant]
  11. AMITRIPTYLINE HCL [Concomitant]

REACTIONS (4)
  - DIARRHOEA [None]
  - GASTROINTESTINAL DISORDER [None]
  - MUSCLE SPASMS [None]
  - SENSATION OF HEAVINESS [None]
